FAERS Safety Report 25488077 (Version 1)
Quarter: 2025Q2

REPORT INFORMATION
  Report Type: Spontaneous
  Country: US (occurrence: US)
  Receive Date: 20250627
  Receipt Date: 20250627
  Transmission Date: 20250716
  Serious: No
  Sender: RARE DISEASE THERAPEUTICS, INC.
  Company Number: US-Rare Disease Therapeutics, Inc.-2179495

PATIENT
  Age: 49 Year
  Sex: Male

DRUGS (1)
  1. ANAVIP [Suspect]
     Active Substance: PIT VIPER (CROTALINAE) IMMUNE GLOBULIN ANTIVENIN (EQUINE)
     Dates: start: 20230813

REACTIONS (4)
  - Swelling of eyelid [Unknown]
  - Blood pressure decreased [Unknown]
  - Tachycardia [Unknown]
  - Rash [Unknown]
